FAERS Safety Report 21922483 (Version 2)
Quarter: 2023Q1

REPORT INFORMATION
  Report Type: Report from Study
  Country: US (occurrence: US)
  Receive Date: 20230128
  Receipt Date: 20230307
  Transmission Date: 20230417
  Serious: Yes (Death)
  Sender: FDA-Public Use
  Company Number: US-JNJFOC-20230154588

PATIENT
  Age: 24 Year
  Sex: Male

DRUGS (5)
  1. SPRAVATO [Suspect]
     Active Substance: ESKETAMINE
     Indication: Major depression
     Dosage: ^56 MG, 2 TOTAL DOSES^
     Dates: start: 20220909, end: 20220913
  2. SPRAVATO [Suspect]
     Active Substance: ESKETAMINE
     Indication: Depression
     Dosage: ^84 MG, 14 TOTAL DOSES^
     Dates: start: 20220916, end: 20221219
  3. TRINTELLIX [Concomitant]
     Active Substance: VORTIOXETINE HYDROBROMIDE
  4. LEXAPRO [Concomitant]
     Active Substance: ESCITALOPRAM OXALATE
  5. LORAZEPAM [Concomitant]
     Active Substance: LORAZEPAM

REACTIONS (2)
  - Completed suicide [Fatal]
  - Drug ineffective [Unknown]

NARRATIVE: CASE EVENT DATE: 20220101
